FAERS Safety Report 9470650 (Version 1)
Quarter: 2013Q3

REPORT INFORMATION
  Report Type: Spontaneous
  Country: IL (occurrence: None)
  Receive Date: 20130815
  Receipt Date: 20130815
  Transmission Date: 20140515
  Serious: Yes (Life-Threatening, Hospitalization)
  Sender: FDA-Public Use
  Company Number: ALBU20130002

PATIENT
  Age: 18 Month
  Sex: Male

DRUGS (1)
  1. ALBUTEROL SULFATE [Suspect]
     Indication: ACCIDENTAL EXPOSURE TO PRODUCT
     Dosage: 24MG/60ML, SINGLE DOSE, ORAL
     Route: 048

REACTIONS (11)
  - Accidental exposure to product by child [None]
  - Agitation [None]
  - Restlessness [None]
  - Oxygen saturation decreased [None]
  - Respiratory rate increased [None]
  - Sinus tachycardia [None]
  - Blood potassium decreased [None]
  - Electrocardiogram T wave abnormal [None]
  - Blood glucose increased [None]
  - Leukocytosis [None]
  - Neutrophilia [None]
